FAERS Safety Report 20789984 (Version 1)
Quarter: 2022Q2

REPORT INFORMATION
  Report Type: Spontaneous
  Country: DK (occurrence: None)
  Receive Date: 20220505
  Receipt Date: 20220505
  Transmission Date: 20220721
  Serious: Yes (Hospitalization)
  Sender: FDA-Public Use
  Company Number: 2022A164776

PATIENT
  Age: 67 Year
  Sex: Female

DRUGS (1)
  1. DAPAGLIFLOZIN [Suspect]
     Active Substance: DAPAGLIFLOZIN
     Indication: Cardiac failure
     Dosage: STRENGTH: 10 MG
     Route: 048
     Dates: start: 20220406, end: 20220407

REACTIONS (6)
  - Vaginal haemorrhage [Recovered/Resolved]
  - Tension headache [Recovering/Resolving]
  - Sneezing [Unknown]
  - Pruritus [Unknown]
  - Nausea [Recovered/Resolved]
  - Rash [Unknown]

NARRATIVE: CASE EVENT DATE: 20220407
